FAERS Safety Report 19116072 (Version 5)
Quarter: 2021Q3

REPORT INFORMATION
  Report Type: Report from Study
  Country: None (occurrence: BE)
  Receive Date: 20210409
  Receipt Date: 20210929
  Transmission Date: 20211014
  Serious: No
  Sender: FDA-Public Use
  Company Number: BE-ABBVIE-21K-013-3836753-00

PATIENT
  Age: 56 Year
  Sex: Male

DRUGS (22)
  1. DUODOPA [Suspect]
     Active Substance: CARBIDOPA\LEVODOPA
     Dosage: MD 10.0 ML, CD 3.2 ML/HR, ED 1.0 ML, REMAINS AT 16 HRS
     Route: 050
     Dates: start: 20210331, end: 20210426
  2. PROLOPA [Concomitant]
     Active Substance: BENSERAZIDE\LEVODOPA
     Indication: PARKINSON^S DISEASE
     Dosage: AT 7 AM, 12 PM AND 6 PM
  3. DUODOPA [Suspect]
     Active Substance: CARBIDOPA\LEVODOPA
     Indication: PARKINSON^S DISEASE
     Dosage: MD=13.0ML, CD=3.0ML/HR, ED=1.0ML
     Route: 050
     Dates: start: 20210302, end: 20210324
  4. DUODOPA [Suspect]
     Active Substance: CARBIDOPA\LEVODOPA
     Dosage: MD 10.0 ML, CD 3.2 ML/HR, ED 2.3ML, DURING 16 HRS
     Route: 050
     Dates: start: 20210507, end: 20210608
  5. DUODOPA [Suspect]
     Active Substance: CARBIDOPA\LEVODOPA
     Dosage: MD 8.7 ML, CD 3.4 ML/HR, ED 2.5 ML, DURING 16 HRS
     Route: 050
     Dates: start: 20210809, end: 20210922
  6. DAFALGAN [Concomitant]
     Active Substance: ACETAMINOPHEN
     Indication: ANALGESIC THERAPY
  7. REQUIP RETARD [Concomitant]
     Indication: PARKINSON^S DISEASE
     Dosage: AT 7 AM
  8. DUODOPA [Suspect]
     Active Substance: CARBIDOPA\LEVODOPA
     Dosage: MD=13.0ML, CD=3.0ML/HR, ED=1.5ML
     Route: 050
     Dates: start: 20210324, end: 202103
  9. XANAX [Concomitant]
     Active Substance: ALPRAZOLAM
     Indication: ANXIOLYTIC THERAPY
  10. REQUIP [Concomitant]
     Active Substance: ROPINIROLE HYDROCHLORIDE
     Indication: PARKINSON^S DISEASE
     Dosage: AT 7 AM
  11. PAROXETINE. [Concomitant]
     Active Substance: PAROXETINE
     Indication: ANXIETY DISORDER
  12. PANTOPRAZOLE TEVA [Concomitant]
     Active Substance: PANTOPRAZOLE SODIUM
     Indication: GASTROINTESTINAL DISORDER THERAPY
  13. XANAX [Concomitant]
     Active Substance: ALPRAZOLAM
     Indication: ANXIOLYTIC THERAPY
  14. PROLOPA [Concomitant]
     Active Substance: BENSERAZIDE\LEVODOPA
     Dosage: AT 3 PM
  15. DUODOPA [Suspect]
     Active Substance: CARBIDOPA\LEVODOPA
     Dosage: MD 10.0 ML, CD 3.0 ML/HR, ED 2.3ML, DURING 16 HRS
     Route: 050
     Dates: start: 20210426, end: 20210507
  16. PAROXETINE. [Concomitant]
     Active Substance: PAROXETINE
     Indication: DEPRESSION
  17. PROLOPA HBS [Concomitant]
     Active Substance: BENSERAZIDE\LEVODOPA
     Indication: PARKINSON^S DISEASE
     Dosage: AT BEDTIME AND AT WITHDRAWAL OF THE PUMP
  18. LYRICA [Concomitant]
     Active Substance: PREGABALIN
     Indication: GENERALISED ANXIETY DISORDER
  19. MOVICOL [Concomitant]
     Active Substance: POLYETHYLENE GLYCOL 3350\POTASSIUM CHLORIDE\SODIUM BICARBONATE\SODIUM CHLORIDE
     Indication: LAXATIVE SUPPORTIVE CARE
  20. PROLOPA [Concomitant]
     Active Substance: BENSERAZIDE\LEVODOPA
     Indication: PARKINSON^S DISEASE
     Dosage: DISPERSIBLE, 30 MINUTES BEFORE PUMP CONNECTION
  21. DUODOPA [Suspect]
     Active Substance: CARBIDOPA\LEVODOPA
     Dosage: MD 8.7 ML, CD 3.2 ML/HR, ED 2.5 ML, DURING 16 HRS
     Route: 050
     Dates: start: 20210608, end: 20210809
  22. DUODOPA [Suspect]
     Active Substance: CARBIDOPA\LEVODOPA
     Dosage: MD 8.7 ML, CD 3.2 ML/HR, ED 2.8 ML, DURING 16 HRS
     Route: 050
     Dates: start: 20210922

REACTIONS (27)
  - Therapeutic product effect incomplete [Not Recovered/Not Resolved]
  - Feeling abnormal [Recovered/Resolved]
  - Dyspnoea [Unknown]
  - Skin burning sensation [Unknown]
  - Dystonia [Unknown]
  - Obstruction [Recovering/Resolving]
  - Stress [Unknown]
  - Abdominal pain [Recovered/Resolved]
  - Foot deformity [Unknown]
  - Fatigue [Unknown]
  - Dyskinesia [Unknown]
  - Hypotonia [Unknown]
  - Mobility decreased [Unknown]
  - Freezing phenomenon [Unknown]
  - On and off phenomenon [Not Recovered/Not Resolved]
  - Anxiety [Unknown]
  - Device issue [Recovered/Resolved]
  - Gait disturbance [Unknown]
  - Bradykinesia [Not Recovered/Not Resolved]
  - Malaise [Unknown]
  - Chest discomfort [Recovered/Resolved]
  - Muscle spasms [Unknown]
  - Muscle tightness [Recovered/Resolved]
  - Dermatitis allergic [Unknown]
  - Back pain [Unknown]
  - Musculoskeletal stiffness [Unknown]
  - Asthenia [Unknown]

NARRATIVE: CASE EVENT DATE: 2021
